FAERS Safety Report 5036261-8 (Version None)
Quarter: 2006Q2

REPORT INFORMATION
  Report Type: 
  Country: None (occurrence: None)
  Receive Date: 20060601
  Receipt Date: 20060426
  Transmission Date: 20061013
  Serious: No
  Sender: FDA-Public Use
  Company Number: US200605000203

PATIENT
  Age: 25 Year
  Sex: Female
  Weight: 220 kg

DRUGS (2)
  1. CYMBALTA [Suspect]
     Indication: DEPRESSION
     Dosage: 90 MG
     Dates: start: 20060301
  2. ALBUTEROL [Concomitant]

REACTIONS (2)
  - AMENORRHOEA [None]
  - BLOOD PROLACTIN INCREASED [None]
